FAERS Safety Report 13408305 (Version 2)
Quarter: 2017Q2

REPORT INFORMATION
  Report Type: Spontaneous
  Country: US (occurrence: US)
  Receive Date: 20170406
  Receipt Date: 20170524
  Transmission Date: 20170830
  Serious: No
  Sender: FDA-Public Use
  Company Number: US-ASTRAZENECA-2017SE33954

PATIENT
  Age: 4143 Day
  Sex: Male
  Weight: 36.7 kg

DRUGS (8)
  1. PULMICORT FLEXHALER [Suspect]
     Active Substance: BUDESONIDE
     Indication: MULTIPLE ALLERGIES
     Dosage: PULMICORT RESPULES, UNKNOWN  UNKNOWN
     Route: 055
  2. XOPENEX [Concomitant]
     Active Substance: LEVALBUTEROL HYDROCHLORIDE
     Indication: ASTHMA
     Dosage: UNKNOWN
     Route: 055
  3. LEVALBUTEROL. [Concomitant]
     Active Substance: LEVALBUTEROL
     Indication: ASTHMA
     Route: 055
     Dates: start: 20170325
  4. PULMICORT FLEXHALER [Suspect]
     Active Substance: BUDESONIDE
     Indication: ASTHMA
     Dosage: PULMICORT RESPULES, UNKNOWN  UNKNOWN
     Route: 055
  5. PULMICORT FLEXHALER [Suspect]
     Active Substance: BUDESONIDE
     Indication: MULTIPLE ALLERGIES
     Dosage: 90 MCG, 2 PUFFS TWICE DAILY
     Route: 055
     Dates: start: 20170325
  6. PULMICORT FLEXHALER [Suspect]
     Active Substance: BUDESONIDE
     Indication: ASTHMA
     Dosage: 90 MCG, 2 PUFFS TWICE DAILY
     Route: 055
     Dates: start: 20170325
  7. PREDNISONE. [Concomitant]
     Active Substance: PREDNISONE
     Indication: INFLAMMATION
     Route: 048
     Dates: start: 20170326
  8. FLUTICASONE. [Concomitant]
     Active Substance: FLUTICASONE
     Indication: HYPERSENSITIVITY
     Route: 045
     Dates: start: 20170325

REACTIONS (15)
  - Intentional product misuse [Unknown]
  - Pruritus [Unknown]
  - Product use issue [Unknown]
  - Seasonal allergy [Unknown]
  - Asthma [Unknown]
  - Hypersensitivity [Unknown]
  - Pharyngitis streptococcal [Unknown]
  - Sinus disorder [Unknown]
  - Skin disorder [Unknown]
  - Device malfunction [Unknown]
  - Off label use [Unknown]
  - Condition aggravated [Unknown]
  - Neck pain [Unknown]
  - Wheezing [Unknown]
  - Cough [Unknown]

NARRATIVE: CASE EVENT DATE: 20170325
